FAERS Safety Report 9355664 (Version 1)
Quarter: 2013Q2

REPORT INFORMATION
  Report Type: Spontaneous
  Country: US (occurrence: None)
  Receive Date: 20130618
  Receipt Date: 20130618
  Transmission Date: 20140414
  Serious: Yes (Hospitalization)
  Sender: FDA-Public Use
  Company Number: None

PATIENT
  Age: 80 Year
  Sex: Female
  Weight: 52 kg

DRUGS (1)
  1. VERAPAMIL [Suspect]
     Route: 048
     Dates: start: 20120824, end: 20120824

REACTIONS (4)
  - Dizziness [None]
  - Vision blurred [None]
  - Presyncope [None]
  - Heart rate decreased [None]
